FAERS Safety Report 9838554 (Version 1)
Quarter: 2013Q4

REPORT INFORMATION
  Report Type: Spontaneous
  Country: US (occurrence: None)
  Receive Date: 20131206
  Receipt Date: 20131206
  Transmission Date: 20140711
  Serious: Yes (Other)
  Sender: FDA-Public Use
  Company Number: 385204

PATIENT
  Age: 72 Year
  Sex: Female
  Weight: 53.5 kg

DRUGS (3)
  1. NOVOLOG FLEXPEN [Suspect]
     Indication: TYPE 2 DIABETES MELLITUS
     Dosage: SLIDING SCALE
     Route: 058
     Dates: start: 2007
  2. LEVEMIR FLEXPEN (INSULIN DETEMIR) [Concomitant]
  3. AMARYL (GLIMEPIRIDE) [Concomitant]

REACTIONS (2)
  - Device malfunction [None]
  - Blood glucose increased [None]
